FAERS Safety Report 8834765 (Version 1)
Quarter: 2012Q4

REPORT INFORMATION
  Report Type: Spontaneous
  Country: DK (occurrence: None)
  Receive Date: 20121009
  Receipt Date: 20121009
  Transmission Date: 20130627
  Serious: Yes (Hospitalization)
  Sender: FDA-Public Use
  Company Number: 2012MA011870

PATIENT
  Age: 68 Year
  Sex: Female

DRUGS (5)
  1. OXALIPLATIN FOR INJECTION [Suspect]
     Indication: COLON CANCER METASTATIC
     Route: 042
     Dates: start: 20061231, end: 20120618
  2. CETUXIMAB [Concomitant]
  3. BEVACIZUMAB [Concomitant]
  4. FOLIC ACID [Concomitant]
  5. FLUOROURACIL [Concomitant]

REACTIONS (7)
  - Thrombocytopenia [None]
  - Gingival bleeding [None]
  - Epistaxis [None]
  - Nail bed bleeding [None]
  - Haematuria [None]
  - Petechiae [None]
  - Proteinuria [None]
